FAERS Safety Report 23805380 (Version 1)
Quarter: 2024Q2

REPORT INFORMATION
  Report Type: Spontaneous
  Country: JP (occurrence: JP)
  Receive Date: 20240502
  Receipt Date: 20240502
  Transmission Date: 20240716
  Serious: Yes (Hospitalization, Other)
  Sender: FDA-Public Use
  Company Number: None

PATIENT
  Age: 47 Year
  Sex: Male

DRUGS (13)
  1. VALSARTAN [Suspect]
     Active Substance: VALSARTAN
     Indication: Product used for unknown indication
     Dosage: UNK, UNK
  2. CYCLOSPORINE [Suspect]
     Active Substance: CYCLOSPORINE
     Indication: Liver disorder
     Dosage: 50 G, ONCE PER DAY
  3. CYCLOSPORINE [Suspect]
     Active Substance: CYCLOSPORINE
     Indication: Drug reaction with eosinophilia and systemic symptoms
     Dosage: UNK, UNK
  4. METHYLPREDNISOLONE [Suspect]
     Active Substance: METHYLPREDNISOLONE
     Indication: Liver disorder
     Dosage: 1 G, ONCE PER DAY (REPEATED)
  5. METHYLPREDNISOLONE [Suspect]
     Active Substance: METHYLPREDNISOLONE
     Indication: Drug reaction with eosinophilia and systemic symptoms
  6. PREDNISOLONE [Suspect]
     Active Substance: PREDNISOLONE
     Indication: Liver disorder
     Dosage: 20 MG, ONCE PER DAY
     Route: 048
  7. PREDNISOLONE [Suspect]
     Active Substance: PREDNISOLONE
     Indication: Drug reaction with eosinophilia and systemic symptoms
     Dosage: 7.5 MG, ONCE PER DAY
     Route: 048
  8. PREDNISOLONE [Suspect]
     Active Substance: PREDNISOLONE
     Dosage: 20 MG, UNK
     Route: 048
  9. PREDNISOLONE [Suspect]
     Active Substance: PREDNISOLONE
     Dosage: 1 MG/KG, ONCE PER DAY
     Route: 048
  10. PREDNISOLONE [Suspect]
     Active Substance: PREDNISOLONE
     Dosage: UNK,  UNK (REDUCTION IN THE DOSE)
     Route: 048
  11. PREDNISOLONE [Suspect]
     Active Substance: PREDNISOLONE
     Dosage: UNK, UNK (DOSE WAS CAREFULLY TAPERED)
     Route: 048
  12. IMMUNGLOBULIN [Concomitant]
     Indication: Liver disorder
     Route: 042
  13. IMMUNGLOBULIN [Concomitant]
     Indication: Drug reaction with eosinophilia and systemic symptoms

REACTIONS (5)
  - Herpes zoster [Unknown]
  - Cytomegalovirus infection reactivation [Unknown]
  - Fulminant type 1 diabetes mellitus [Unknown]
  - Photosensitivity reaction [Unknown]
  - Vitiligo [Unknown]
